FAERS Safety Report 8459629-6 (Version None)
Quarter: 2012Q2

REPORT INFORMATION
  Report Type: 
  Country: None (occurrence: None)
  Receive Date: 20120622
  Receipt Date: 20120614
  Transmission Date: 20120825
  Serious: Yes (Hospitalization)
  Sender: FDA-Public Use
  Company Number: TW-GLAXOSMITHKLINE-A0982024A

PATIENT
  Sex: Male
  Weight: 65 kg

DRUGS (6)
  1. AVANDAMET [Suspect]
     Indication: PRODUCT USED FOR UNKNOWN INDICATION
     Dosage: 1G TWICE PER DAY
  2. UNKNOWN [Concomitant]
  3. DOXABEN [Concomitant]
  4. METFORMIN HCL [Suspect]
     Indication: PRODUCT USED FOR UNKNOWN INDICATION
     Dosage: 1G TWICE PER DAY
  5. UNKNOWN [Concomitant]
  6. HYZAAR [Concomitant]

REACTIONS (1)
  - ANORECTAL DISORDER [None]
